FAERS Safety Report 24147124 (Version 1)
Quarter: 2024Q3

REPORT INFORMATION
  Report Type: Spontaneous
  Country: DE (occurrence: DE)
  Receive Date: 20240729
  Receipt Date: 20240729
  Transmission Date: 20241016
  Serious: Yes (Other)
  Sender: BOEHRINGER INGELHEIM
  Company Number: DE-BoehringerIngelheim-2024-BI-042399

PATIENT
  Sex: Male

DRUGS (1)
  1. JARDIANCE [Suspect]
     Active Substance: EMPAGLIFLOZIN
     Indication: Cardiac failure
     Dosage: FORM STRENGTH: 10 MILLIGRAM

REACTIONS (1)
  - Fournier^s gangrene [Unknown]
